FAERS Safety Report 9783117 (Version 1)
Quarter: 2013Q4

REPORT INFORMATION
  Report Type: Spontaneous
  Country: US (occurrence: US)
  Receive Date: 20131226
  Receipt Date: 20131226
  Transmission Date: 20140711
  Serious: Yes (Other)
  Sender: FDA-Public Use
  Company Number: US-PFIZER INC-2013367916

PATIENT
  Age: 23 Year
  Sex: Female
  Weight: 58.96 kg

DRUGS (2)
  1. ADVIL [Suspect]
     Indication: HEADACHE
     Dosage: 400 MG (TAKING TWO 200MG CAPSULES), UNK
     Route: 048
     Dates: start: 20131220, end: 20131221
  2. ALBUTEROL [Concomitant]
     Indication: ASTHMA
     Dosage: UNK

REACTIONS (3)
  - Anaphylactic reaction [Recovering/Resolving]
  - Gastrointestinal disorder [Recovering/Resolving]
  - Eczema eyelids [Recovering/Resolving]
